FAERS Safety Report 6943149-1 (Version None)
Quarter: 2010Q3

REPORT INFORMATION
  Report Type: 
  Country: None (occurrence: None)
  Receive Date: 20100826
  Receipt Date: 20100817
  Transmission Date: 20110219
  Serious: Yes (Other)
  Sender: FDA-Public Use
  Company Number: DE-PFIZER INC-2010103132

PATIENT
  Age: 61 Year
  Sex: Male

DRUGS (2)
  1. ZYVOX [Suspect]
  2. MARCUMAR [Interacting]
     Dosage: UNK

REACTIONS (2)
  - DRUG INTERACTION [None]
  - PROTHROMBIN TIME ABNORMAL [None]
